FAERS Safety Report 6372438-7 (Version None)
Quarter: 2009Q3

REPORT INFORMATION
  Report Type: 
  Country: None (occurrence: None)
  Receive Date: 20090924
  Receipt Date: 20080728
  Transmission Date: 20100115
  Serious: No
  Sender: FDA-Public Use
  Company Number: US-ASTRAZENECA-2008UW15475

PATIENT
  Age: 57 Year
  Sex: Male
  Weight: 81.6 kg

DRUGS (2)
  1. SEROQUEL [Suspect]
     Indication: SUICIDAL IDEATION
     Route: 048
  2. SEROQUEL [Suspect]
     Indication: DEPRESSION
     Route: 048

REACTIONS (4)
  - BALANCE DISORDER [None]
  - DIZZINESS [None]
  - HALLUCINATION [None]
  - SOMNOLENCE [None]
